FAERS Safety Report 10723400 (Version 1)
Quarter: 2015Q1

REPORT INFORMATION
  Report Type: Spontaneous
  Country: IT (occurrence: IT)
  Receive Date: 20150120
  Receipt Date: 20150120
  Transmission Date: 20150721
  Serious: Yes (Hospitalization, Other)
  Sender: FDA-Public Use
  Company Number: PHHY2015IT005548

PATIENT
  Age: 42 Year
  Sex: Male

DRUGS (13)
  1. BACLOFEN INTRATHECAL [Suspect]
     Active Substance: BACLOFEN
     Dosage: 500 OT, (F.TG/DAY)
     Route: 037
     Dates: start: 20100326
  2. BACLOFEN INTRATHECAL [Suspect]
     Active Substance: BACLOFEN
     Dosage: 430 UG, QD
     Route: 037
  3. BACLOFEN. [Suspect]
     Active Substance: BACLOFEN
     Indication: MUSCLE SPASTICITY
     Dosage: 75 MG, QD
     Route: 048
  4. PREGABALIN. [Suspect]
     Active Substance: PREGABALIN
     Indication: MUSCLE SPASTICITY
     Dosage: 150 MG, QD
     Route: 065
     Dates: end: 20100503
  5. BACLOFEN INTRATHECAL [Suspect]
     Active Substance: BACLOFEN
     Dosage: 590 UG, QD
     Route: 037
     Dates: start: 20100407
  6. BACLOFEN INTRATHECAL [Suspect]
     Active Substance: BACLOFEN
     Dosage: 350 OT, QD (350 F.TG/DAY)
     Route: 037
  7. ZICONOTIDE [Suspect]
     Active Substance: ZICONOTIDE
     Indication: PAIN
     Dosage: 1.178 UG, QD
     Route: 065
     Dates: start: 20100326
  8. ZICONOTIDE [Suspect]
     Active Substance: ZICONOTIDE
     Dosage: 2.39 UG, QD
     Route: 065
     Dates: start: 20100407
  9. ZICONOTIDE [Suspect]
     Active Substance: ZICONOTIDE
     Dosage: 1.744 UG, QD
     Route: 065
  10. BACLOFEN INTRATHECAL [Suspect]
     Active Substance: BACLOFEN
     Dosage: 500 UG, QD
     Route: 037
     Dates: start: 20100308
  11. ATENOLOL. [Suspect]
     Active Substance: ATENOLOL
     Indication: MUSCLE SPASTICITY
     Dosage: 100 MG, QD
     Route: 065
     Dates: end: 20100503
  12. ZICONOTIDE [Suspect]
     Active Substance: ZICONOTIDE
     Dosage: 2.5 OT, QD (2.5 F.TG/DAY)
     Route: 065
  13. BACLOFEN INTRATHECAL [Suspect]
     Active Substance: BACLOFEN
     Indication: MUSCLE SPASTICITY
     Route: 037
     Dates: start: 201001

REACTIONS (13)
  - Cognitive disorder [Recovering/Resolving]
  - Autonomic nervous system imbalance [Recovering/Resolving]
  - Pain [Recovering/Resolving]
  - Extraskeletal ossification [Unknown]
  - No therapeutic response [Unknown]
  - Therapeutic response decreased [Unknown]
  - Electroencephalogram abnormal [Recovered/Resolved]
  - Infection [Unknown]
  - Depressed level of consciousness [Recovering/Resolving]
  - Pyrexia [Unknown]
  - Aphasia [Recovering/Resolving]
  - Somnolence [Unknown]
  - Status epilepticus [Recovered/Resolved]
